FAERS Safety Report 20368339 (Version 2)
Quarter: 2022Q1

REPORT INFORMATION
  Report Type: Other
  Country: US (occurrence: None)
  Receive Date: 20220124
  Receipt Date: 20220323
  Transmission Date: 20220423
  Serious: Yes (Hospitalization, Other)
  Sender: FDA-Public Use
  Company Number: US-ROCHE-3001756

PATIENT
  Age: 50 Year
  Sex: Female

DRUGS (14)
  1. OCREVUS [Suspect]
     Active Substance: OCRELIZUMAB
     Indication: Relapsing-remitting multiple sclerosis
     Dosage: VIAL; DOT: 06/JUL/2020; LAST DOT: 09/JUL/2021
     Route: 042
     Dates: start: 20180615
  2. OCREVUS [Suspect]
     Active Substance: OCRELIZUMAB
     Dosage: TWO 300 MG VIALS
     Route: 042
  3. CARVEDILOL [Concomitant]
     Active Substance: CARVEDILOL
  4. TIZANIDINE [Concomitant]
     Active Substance: TIZANIDINE
  5. ACYCLOVIR [Concomitant]
     Active Substance: ACYCLOVIR
  6. FLUTICASONE PROPIONATE [Concomitant]
     Active Substance: FLUTICASONE PROPIONATE
  7. GABAPENTIN [Concomitant]
     Active Substance: GABAPENTIN
  8. OXYBUTYNIN [Concomitant]
     Active Substance: OXYBUTYNIN
  9. PREDNISONE [Concomitant]
     Active Substance: PREDNISONE
  10. ROPINIROLE [Concomitant]
     Active Substance: ROPINIROLE
  11. SYNTHROID [Concomitant]
     Active Substance: LEVOTHYROXINE SODIUM
  12. SERTRALINE [Concomitant]
     Active Substance: SERTRALINE HYDROCHLORIDE
  13. ALEVE [Concomitant]
     Active Substance: NAPROXEN SODIUM
  14. VITAMIN B12 [Concomitant]
     Active Substance: CYANOCOBALAMIN

REACTIONS (11)
  - Multiple sclerosis [Not Recovered/Not Resolved]
  - Multiple sclerosis relapse [Recovered/Resolved]
  - Seizure [Unknown]
  - COVID-19 pneumonia [Unknown]
  - Headache [Recovered/Resolved]
  - Nausea [Recovered/Resolved]
  - Weight decreased [Not Recovered/Not Resolved]
  - Decreased appetite [Recovered/Resolved]
  - Feeling hot [Not Recovered/Not Resolved]
  - Deafness [Not Recovered/Not Resolved]
  - Dysgraphia [Not Recovered/Not Resolved]

NARRATIVE: CASE EVENT DATE: 20211101
